FAERS Safety Report 9824951 (Version 1)
Quarter: 2014Q1

REPORT INFORMATION
  Report Type: Report from Study
  Country: CA (occurrence: CA)
  Receive Date: 20140117
  Receipt Date: 20140117
  Transmission Date: 20141002
  Serious: Yes (Other)
  Sender: FDA-Public Use
  Company Number: CA-JNJFOC-20140105462

PATIENT
  Age: 20 Year
  Sex: Male
  Weight: 59 kg

DRUGS (5)
  1. REMICADE [Suspect]
     Indication: CROHN^S DISEASE
     Route: 042
     Dates: start: 201302
  2. BENADRYL [Concomitant]
     Indication: URTICARIA
     Route: 065
  3. BENADRYL [Concomitant]
     Indication: PREMEDICATION
     Route: 065
  4. TYLENOL [Concomitant]
     Indication: PREMEDICATION
     Route: 065
  5. TYLENOL 3 [Concomitant]
     Route: 065

REACTIONS (2)
  - Acarodermatitis [Not Recovered/Not Resolved]
  - Urticaria [Not Recovered/Not Resolved]
